FAERS Safety Report 16684151 (Version 1)
Quarter: 2019Q3

REPORT INFORMATION
  Report Type: Spontaneous
  Country: TW (occurrence: TW)
  Receive Date: 20190808
  Receipt Date: 20190808
  Transmission Date: 20191004
  Serious: Yes (Other)
  Sender: FDA-Public Use
  Company Number: PHHY2012TW144039

PATIENT
  Age: 31 Year
  Sex: Male

DRUGS (1)
  1. CARBAMAZEPINE. [Suspect]
     Active Substance: CARBAMAZEPINE
     Indication: SEIZURE
     Route: 048

REACTIONS (6)
  - Disease progression [Unknown]
  - Kidney angiomyolipoma [Unknown]
  - Seizure [Unknown]
  - Kidney enlargement [Unknown]
  - Tuberous sclerosis complex [Unknown]
  - Epilepsy [Unknown]

NARRATIVE: CASE EVENT DATE: 1997
